FAERS Safety Report 6591706-7 (Version None)
Quarter: 2010Q1

REPORT INFORMATION
  Report Type: 
  Country: None (occurrence: None)
  Receive Date: 20100221
  Receipt Date: 20090604
  Transmission Date: 20100710
  Serious: No
  Sender: FDA-Public Use
  Company Number: US-ALLERGAN-0907818US

PATIENT
  Sex: Female

DRUGS (2)
  1. BOTOX [Suspect]
     Indication: TORTICOLLIS
     Dosage: 300 UNITS, SINGLE
     Route: 030
     Dates: start: 20090515, end: 20090515
  2. BOTOX [Suspect]
     Dosage: UNK, SINGLE
     Route: 030
     Dates: start: 20081201, end: 20081201

REACTIONS (1)
  - DRUG INEFFECTIVE [None]
